FAERS Safety Report 14450482 (Version 9)
Quarter: 2020Q1

REPORT INFORMATION
  Report Type: Report from Study
  Country: DE (occurrence: DE)
  Receive Date: 20180129
  Receipt Date: 20200106
  Transmission Date: 20200409
  Serious: Yes (Hospitalization, Other)
  Sender: FDA-Public Use
  Company Number: DE-INCYTE CORPORATION-2018IN000562

PATIENT

DRUGS (11)
  1. JAKAVI [Suspect]
     Active Substance: RUXOLITINIB
     Dosage: 15 MG, BID
     Route: 048
     Dates: start: 20180215, end: 20180806
  2. ELIQUIS [Concomitant]
     Active Substance: APIXABAN
     Indication: ATRIAL FIBRILLATION
     Dosage: 2.5 MG, BID (1-0-1)
     Route: 048
     Dates: start: 20181122
  3. FALITHROM [Concomitant]
     Active Substance: PHENPROCOUMON
     Indication: DEEP VEIN THROMBOSIS
     Dosage: 3 MG, UNK DEPENDING ON INR VALUE (TO ADJUST INR AS 2-3)
     Route: 048
     Dates: end: 20181122
  4. TELMISARTAN. [Concomitant]
     Active Substance: TELMISARTAN
     Indication: HYPERTENSION
     Dosage: 1 DF, QD (80/12.5MG)
     Route: 048
     Dates: start: 20170316, end: 20180111
  5. JAKAVI [Suspect]
     Active Substance: RUXOLITINIB
     Indication: POLYCYTHAEMIA VERA
     Dosage: 10 MG, BID
     Route: 048
     Dates: start: 20170925, end: 20180214
  6. JAKAVI [Suspect]
     Active Substance: RUXOLITINIB
     Dosage: 20 MG, BID
     Route: 048
     Dates: start: 20180807
  7. METOHEXAL [Concomitant]
     Active Substance: METOPROLOL
     Indication: ATRIAL FIBRILLATION
     Dosage: 95 MG, QD
     Route: 048
  8. TELMISARTAN. [Concomitant]
     Active Substance: TELMISARTAN
     Dosage: 1.5 DF, QD
     Route: 048
     Dates: start: 20180112
  9. ALLOPURINOL. [Concomitant]
     Active Substance: ALLOPURINOL
     Indication: PRODUCT USED FOR UNKNOWN INDICATION
     Dosage: 0.5 DF, QD
     Route: 048
     Dates: start: 20091102
  10. HERPES VIRUS VACCINE [Concomitant]
     Active Substance: HERPES SIMPLEX VACCINE
     Indication: PROPHYLAXIS
     Dosage: UNK UNK, ONCE/SINGLE
     Route: 030
     Dates: start: 20190829, end: 20190829
  11. ACICLOVIR [Concomitant]
     Active Substance: ACYCLOVIR
     Indication: HERPES ZOSTER
     Dosage: 800 MG (5X1)
     Route: 065
     Dates: start: 20190703, end: 20190709

REACTIONS (3)
  - Urinary tract infection [Recovered/Resolved]
  - Hypertension [Not Recovered/Not Resolved]
  - Hydrocele [Recovered/Resolved]

NARRATIVE: CASE EVENT DATE: 20171019
